FAERS Safety Report 10576989 (Version 2)
Quarter: 2014Q4

REPORT INFORMATION
  Report Type: Report from Study
  Country: ES (occurrence: ES)
  Receive Date: 20141111
  Receipt Date: 20141111
  Transmission Date: 20150529
  Serious: Yes (Hospitalization)
  Sender: FDA-Public Use
  Company Number: ES-ABBVIE-12P-144-0946921-00

PATIENT
  Age: 19 Year
  Sex: Male

DRUGS (5)
  1. MERCAPTOPURINE. [Concomitant]
     Active Substance: MERCAPTOPURINE
     Indication: CROHN^S DISEASE
  2. HUMIRA [Suspect]
     Active Substance: ADALIMUMAB
     Indication: CROHN^S DISEASE
     Route: 058
     Dates: start: 20090604, end: 20090604
  3. HUMIRA [Suspect]
     Active Substance: ADALIMUMAB
     Route: 058
     Dates: end: 20100510
  4. REMICADE [Concomitant]
     Active Substance: INFLIXIMAB
     Indication: CROHN^S DISEASE
  5. HUMIRA [Suspect]
     Active Substance: ADALIMUMAB
     Route: 058

REACTIONS (1)
  - Pyelonephritis [Not Recovered/Not Resolved]

NARRATIVE: CASE EVENT DATE: 20100629
